FAERS Safety Report 10262289 (Version 1)
Quarter: 2014Q2

REPORT INFORMATION
  Report Type: Spontaneous
  Country: IT (occurrence: IT)
  Receive Date: 20140626
  Receipt Date: 20140626
  Transmission Date: 20141212
  Serious: Yes (Hospitalization)
  Sender: FDA-Public Use
  Company Number: IT-TEVA-490297ISR

PATIENT
  Age: 63 Year
  Sex: Male

DRUGS (2)
  1. GEMCITABINE [Suspect]
     Indication: CHOLANGIOCARCINOMA
     Dosage: 1950 MG TOTAL
     Route: 042
     Dates: start: 20140527
  2. OXALIPLATIN [Suspect]
     Indication: CHOLANGIOCARCINOMA
     Dosage: 195 MG TOTAL
     Route: 042
     Dates: start: 20140529

REACTIONS (3)
  - Dehydration [Recovering/Resolving]
  - Diarrhoea [Recovering/Resolving]
  - Nausea [Recovering/Resolving]
